FAERS Safety Report 11468372 (Version 2)
Quarter: 2015Q3

REPORT INFORMATION
  Report Type: Spontaneous
  Country: US (occurrence: US)
  Receive Date: 20150903
  Receipt Date: 20150903
  Transmission Date: 20151125
  Serious: No
  Sender: FDA-Public Use
  Company Number: US-ELI_LILLY_AND_COMPANY-US201108008045

PATIENT
  Age: 62 Year
  Sex: Female

DRUGS (7)
  1. CYMBALTA [Suspect]
     Active Substance: DULOXETINE HYDROCHLORIDE
     Dosage: 30 MG, QOD
  2. OXYGEN. [Concomitant]
     Active Substance: OXYGEN
  3. ALCOHOL. [Concomitant]
     Active Substance: ALCOHOL
  4. CYMBALTA [Suspect]
     Active Substance: DULOXETINE HYDROCHLORIDE
     Indication: DEPRESSION
     Dosage: 30 MG, QD
  5. SPIRIVA [Concomitant]
     Active Substance: TIOTROPIUM BROMIDE MONOHYDRATE
  6. PROAIR HFA [Concomitant]
     Active Substance: ALBUTEROL SULFATE
  7. ADVAIR HFA [Concomitant]
     Active Substance: FLUTICASONE PROPIONATE\SALMETEROL XINAFOATE

REACTIONS (14)
  - Musculoskeletal stiffness [Unknown]
  - Neck pain [Unknown]
  - Somnolence [Unknown]
  - Musculoskeletal pain [Unknown]
  - Pulmonary congestion [Not Recovered/Not Resolved]
  - Chest discomfort [Not Recovered/Not Resolved]
  - Heart rate increased [Unknown]
  - Drug ineffective [Not Recovered/Not Resolved]
  - Malaise [Unknown]
  - Tension [Unknown]
  - Drug dose omission [Recovered/Resolved]
  - Depression [Not Recovered/Not Resolved]
  - Thinking abnormal [Unknown]
  - Back pain [Unknown]

NARRATIVE: CASE EVENT DATE: 20110821
